FAERS Safety Report 4277144-0 (Version None)
Quarter: 2004Q1

REPORT INFORMATION
  Report Type: 
  Country: None (occurrence: None)
  Receive Date: 20040120
  Receipt Date: 20040109
  Transmission Date: 20041129
  Serious: Yes (Other)
  Sender: FDA-Public Use
  Company Number: HQWYE254313JAN04

PATIENT
  Age: 72 Year
  Sex: Male

DRUGS (1)
  1. MINOCYCLINE HCL [Suspect]
     Indication: RESPIRATORY TRACT INFECTION
     Dosage: 200 MG DAILY
     Route: 042
     Dates: start: 20030611, end: 20030612

REACTIONS (1)
  - LUNG DISORDER [None]
